FAERS Safety Report 6113703-8 (Version None)
Quarter: 2009Q1

REPORT INFORMATION
  Report Type: 
  Country: None (occurrence: None)
  Receive Date: 20090312
  Receipt Date: 20090304
  Transmission Date: 20090719
  Serious: Yes (Hospitalization)
  Sender: FDA-Public Use
  Company Number: US-ELI_LILLY_AND_COMPANY-US200903001223

PATIENT
  Sex: Female

DRUGS (12)
  1. FORTEO [Suspect]
     Indication: OSTEOPOROSIS
     Dosage: UNK, UNK
     Dates: end: 20090101
  2. FORTEO [Suspect]
     Dates: start: 20090302
  3. ENBREL [Concomitant]
     Indication: RHEUMATOID ARTHRITIS
     Dosage: 1 D/F, WEEKLY (1/W)
  4. METHOTREXATE [Concomitant]
     Dosage: 12.5 MG, WEEKLY (1/W)
  5. LASIX [Concomitant]
     Dosage: 40 MG, DAILY (1/D)
  6. MICRO-K [Concomitant]
     Dosage: 10 MEQ, 2/D
  7. ALTACE [Concomitant]
     Dosage: 2.5 MG, DAILY (1/D)
  8. SYNTHROID [Concomitant]
     Dosage: 125 UG, DAILY (1/D)
  9. FOLIC ACID [Concomitant]
     Dosage: 800 UG, DAILY (1/D)
  10. PREDNISONE [Concomitant]
     Dosage: 13 MG, DAILY (1/D)
  11. OMEPRAZOLE [Concomitant]
     Dosage: 20 MG, DAILY (1/D)
  12. VICODIN [Concomitant]
     Dosage: 1 D/F, DAILY (1/D)

REACTIONS (5)
  - DIARRHOEA [None]
  - EXCORIATION [None]
  - FALL [None]
  - GASTROINTESTINAL INFECTION [None]
  - SKIN ATROPHY [None]
